FAERS Safety Report 10541016 (Version 10)
Quarter: 2020Q3

REPORT INFORMATION
  Report Type: Report from Study
  Country: US (occurrence: US)
  Receive Date: 20141024
  Receipt Date: 20200710
  Transmission Date: 20201102
  Serious: Yes (Other)
  Sender: FDA-Public Use
  Company Number: US-SA-2014SA080213

PATIENT
  Age: 55 Year
  Sex: Female

DRUGS (8)
  1. TERIFLUNOMIDE. [Suspect]
     Active Substance: TERIFLUNOMIDE
     Indication: MULTIPLE SCLEROSIS
     Dosage: 7 MG,QD
     Route: 048
     Dates: start: 20140414, end: 20140512
  2. TERIFLUNOMIDE. [Suspect]
     Active Substance: TERIFLUNOMIDE
     Dosage: 14 MG,QD
     Route: 048
  3. BACLOFEN. [Concomitant]
     Active Substance: BACLOFEN
     Indication: MUSCLE SPASMS
     Dosage: UNK
  4. PANTOPRAZOLE [Concomitant]
     Active Substance: PANTOPRAZOLE
     Indication: ABDOMINAL DISCOMFORT
     Dosage: UNK
  5. TERIFLUNOMIDE. [Suspect]
     Active Substance: TERIFLUNOMIDE
     Dosage: 14 MG,QD
     Route: 048
  6. TERIFLUNOMIDE. [Suspect]
     Active Substance: TERIFLUNOMIDE
     Dosage: 14 MG,QD
     Route: 048
     Dates: start: 20140513, end: 20150713
  7. TERIFLUNOMIDE. [Suspect]
     Active Substance: TERIFLUNOMIDE
     Dosage: 14 MG, QD
     Route: 048
     Dates: start: 20180202
  8. AVONEX [Concomitant]
     Active Substance: INTERFERON BETA-1A
     Indication: MULTIPLE SCLEROSIS
     Dosage: UNK
     Dates: start: 20120701, end: 20140413

REACTIONS (28)
  - Joint effusion [Unknown]
  - Diplopia [Recovered/Resolved]
  - Asthma [Recovered/Resolved]
  - Arthralgia [Unknown]
  - Depression [Unknown]
  - Nasopharyngitis [Recovered/Resolved]
  - Multiple sclerosis [Unknown]
  - Sneezing [Unknown]
  - Illness [Recovered/Resolved]
  - Hepatic enzyme increased [Unknown]
  - Joint injury [Unknown]
  - Lacrimation increased [Unknown]
  - Intervertebral disc protrusion [Recovering/Resolving]
  - Frequent bowel movements [Unknown]
  - Sunburn [Unknown]
  - Rhinorrhoea [Unknown]
  - Gait disturbance [Unknown]
  - Photopsia [Not Recovered/Not Resolved]
  - Fatigue [Not Recovered/Not Resolved]
  - Liver disorder [Unknown]
  - Contusion [Unknown]
  - Road traffic accident [Unknown]
  - Cyst [Unknown]
  - Bradykinesia [Not Recovered/Not Resolved]
  - Heart rate increased [Not Recovered/Not Resolved]
  - Pain in extremity [Unknown]
  - Headache [Recovered/Resolved]
  - Hypertension [Not Recovered/Not Resolved]

NARRATIVE: CASE EVENT DATE: 2014
